FAERS Safety Report 19573617 (Version 2)
Quarter: 2022Q1

REPORT INFORMATION
  Report Type: Spontaneous
  Country: ES (occurrence: ES)
  Receive Date: 20210717
  Receipt Date: 20220302
  Transmission Date: 20220423
  Serious: Yes (Hospitalization, Other)
  Sender: FDA-Public Use
  Company Number: ES-SA-SAC20210617000382

PATIENT
  Age: 77 Year
  Sex: Male
  Weight: 71 kg

DRUGS (11)
  1. IRINOTECAN [Suspect]
     Active Substance: IRINOTECAN
     Indication: Colon cancer
     Dosage: 28315 MILLIGRAM, 2 WEEK (28315 MG, QOW)
     Route: 042
     Dates: start: 20210505, end: 20210505
  2. IRINOTECAN [Suspect]
     Active Substance: IRINOTECAN
     Dosage: 28315 MILLIGRAM, 2 WEEKS (28315 MG, QOW)
     Route: 042
     Dates: start: 20210519, end: 20210519
  3. FLUOROURACIL [Suspect]
     Active Substance: FLUOROURACIL
     Indication: Colon cancer
     Dosage: 756 MILLIGRAM, 2 WEEKS (756 MG, QOW)
     Route: 040
     Dates: start: 20210505, end: 20210505
  4. FLUOROURACIL [Suspect]
     Active Substance: FLUOROURACIL
     Dosage: 3780 MILLIGRAM, 2 WEEKS (3780 MG, QOW)
     Route: 042
     Dates: start: 20210505, end: 20210505
  5. FLUOROURACIL [Suspect]
     Active Substance: FLUOROURACIL
     Dosage: 756 MILLIGRAM, 2 WEEKS (756 MG, QOW)
     Route: 040
     Dates: start: 20210519, end: 20210519
  6. FLUOROURACIL [Suspect]
     Active Substance: FLUOROURACIL
     Dosage: 3780 MILLIGRAM, 2 WEEKS (3780 MG, QOW)
     Route: 042
     Dates: start: 20210519, end: 20210519
  7. AFLIBERCEPT [Suspect]
     Active Substance: AFLIBERCEPT
     Indication: Colon cancer
     Dosage: 300 MILLIGRAM, 2 WEEKS (300 MG, QOW)
     Route: 042
     Dates: start: 20210505, end: 20210505
  8. AFLIBERCEPT [Suspect]
     Active Substance: AFLIBERCEPT
     Dosage: 300 MILLIGRAM, 2 WEEKS (300 MG, QOW)
     Route: 042
     Dates: start: 20210519, end: 20210519
  9. METFORMIN [Concomitant]
     Active Substance: METFORMIN HYDROCHLORIDE
     Indication: Product used for unknown indication
     Dosage: 3400 MILLIGRAM
     Route: 048
     Dates: start: 2013
  10. INSULIN PORK\INSULIN PURIFIED PORK [Concomitant]
     Active Substance: INSULIN PORK\INSULIN PURIFIED PORK
     Indication: Product used for unknown indication
     Dosage: UNK
     Route: 042
     Dates: start: 2014
  11. HYDROCHLOROTHIAZIDE [Concomitant]
     Active Substance: HYDROCHLOROTHIAZIDE
     Indication: Hypertension
     Dosage: 50 MILLIGRAM
     Route: 048
     Dates: start: 2012

REACTIONS (2)
  - Mucosal inflammation [Recovered/Resolved]
  - Rectal haemorrhage [Recovered/Resolved]

NARRATIVE: CASE EVENT DATE: 20210601
